FAERS Safety Report 6408206-7 (Version None)
Quarter: 2009Q4

REPORT INFORMATION
  Report Type: 
  Country: None (occurrence: None)
  Receive Date: 20091021
  Receipt Date: 20091013
  Transmission Date: 20100525
  Serious: Yes (Other)
  Sender: FDA-Public Use
  Company Number: US-ROCHE-662571

PATIENT
  Age: 59 Year
  Sex: Male

DRUGS (2)
  1. PEGASYS [Suspect]
     Dosage: FORM: PRE-FILLED SYRINGE
     Route: 058
  2. RIBAVIRIN [Suspect]
     Route: 065

REACTIONS (3)
  - ABDOMINAL PAIN UPPER [None]
  - CARDIOMEGALY [None]
  - FULL BLOOD COUNT DECREASED [None]
